FAERS Safety Report 6189526-0 (Version None)
Quarter: 2009Q2

REPORT INFORMATION
  Report Type: 
  Country: None (occurrence: None)
  Receive Date: 20090512
  Receipt Date: 20090512
  Transmission Date: 20091009
  Serious: Yes (Death)
  Sender: FDA-Public Use
  Company Number: None

PATIENT
  Age: 40 Year
  Sex: Male

DRUGS (3)
  1. PROPOFOL [Suspect]
     Indication: DRUG ABUSE
     Dosage: IV
     Route: 042
     Dates: start: 20090113, end: 20090113
  2. PROPOFOL [Suspect]
     Indication: DRUG DEPENDENCE
     Dosage: IV
     Route: 042
     Dates: start: 20090113, end: 20090113
  3. DIPRIVAN [Suspect]
     Dosage: IV
     Route: 042

REACTIONS (2)
  - ACCIDENTAL OVERDOSE [None]
  - SELF-MEDICATION [None]
